FAERS Safety Report 7982394-3 (Version None)
Quarter: 2011Q4

REPORT INFORMATION
  Report Type: 
  Country: None (occurrence: None)
  Receive Date: 20111215
  Receipt Date: 20111205
  Transmission Date: 20120403
  Serious: Yes (Death)
  Sender: FDA-Public Use
  Company Number: AT-TEVA-313124ISR

PATIENT
  Age: 80 Year
  Sex: Female

DRUGS (3)
  1. METFORMIN HCL [Suspect]
     Dosage: 1700 MILLIGRAM;
  2. FUROSEMIDE [Suspect]
     Dosage: 30 MILLIGRAM;
  3. DEXIBUPROFEN [Suspect]
     Dosage: 600 MILLIGRAM;

REACTIONS (2)
  - RENAL FAILURE ACUTE [None]
  - LACTIC ACIDOSIS [None]
